FAERS Safety Report 21711449 (Version 1)
Quarter: 2022Q4

REPORT INFORMATION
  Report Type: Spontaneous
  Country: US (occurrence: US)
  Receive Date: 20221212
  Receipt Date: 20221212
  Transmission Date: 20230112
  Serious: No
  Sender: FDA-Public Use
  Company Number: US-002147023-NVSC2022US285755

PATIENT
  Sex: Female

DRUGS (1)
  1. KETOCONAZOLE [Suspect]
     Active Substance: KETOCONAZOLE
     Dosage: UNK, BIW (AS NEEDED)
     Route: 065

REACTIONS (4)
  - Swelling face [Unknown]
  - Hypersensitivity [Unknown]
  - Rash [Unknown]
  - Acne [Unknown]
